FAERS Safety Report 6195779-5 (Version None)
Quarter: 2009Q2

REPORT INFORMATION
  Report Type: 
  Country: None (occurrence: None)
  Receive Date: 20090520
  Receipt Date: 20080616
  Transmission Date: 20091009
  Serious: Yes (Other)
  Sender: FDA-Public Use
  Company Number: US-ASTRAZENECA-2006UW23526

PATIENT
  Age: 13234 Day
  Sex: Female
  Weight: 104.3 kg

DRUGS (9)
  1. SEROQUEL [Suspect]
     Indication: BIPOLAR DISORDER
     Dosage: 100-200MG
     Route: 048
     Dates: start: 20010226, end: 20010710
  2. GEODON [Concomitant]
  3. ALPRAZOLAM [Concomitant]
     Dosage: 0.25MG-0.5MG
     Route: 048
  4. TEGRETOL [Concomitant]
     Dosage: 100-600MG
     Route: 048
  5. BUSPAR [Concomitant]
     Dosage: 10-20MG
     Route: 048
  6. PROTONIX [Concomitant]
     Route: 048
  7. METFORMIN HCL [Concomitant]
     Route: 048
  8. ZOLOFT [Concomitant]
     Dosage: 10-60MG
     Route: 048
  9. CLONIDINE [Concomitant]
     Dosage: 0.2-0.4MG
     Route: 048

REACTIONS (3)
  - DIABETES MELLITUS [None]
  - NICOTINE DEPENDENCE [None]
  - PANIC DISORDER WITH AGORAPHOBIA [None]
